FAERS Safety Report 9535575 (Version 1)
Quarter: 2013Q3

REPORT INFORMATION
  Report Type: Spontaneous
  Country: US (occurrence: US)
  Receive Date: 20130919
  Receipt Date: 20130919
  Transmission Date: 20140515
  Serious: Yes (Other)
  Sender: FDA-Public Use
  Company Number: US-AMGEN-USASP2013064551

PATIENT
  Sex: 0
  Weight: 67.12 kg

DRUGS (1)
  1. PROLIA [Suspect]
     Indication: PRODUCT USED FOR UNKNOWN INDICATION
     Dosage: UNK
     Route: 065
     Dates: start: 20130328

REACTIONS (12)
  - Cellulitis [Unknown]
  - Malaise [Unknown]
  - Abdominal pain upper [Unknown]
  - Nausea [Unknown]
  - Aphagia [Unknown]
  - Weight decreased [Unknown]
  - Headache [Unknown]
  - Ear pain [Unknown]
  - Dysstasia [Unknown]
  - Walking aid user [Unknown]
  - Abdominal pain [Unknown]
  - Rash [Unknown]
